FAERS Safety Report 20499321 (Version 1)
Quarter: 2022Q1

REPORT INFORMATION
  Report Type: Spontaneous
  Country: DE (occurrence: DE)
  Receive Date: 20220222
  Receipt Date: 20220222
  Transmission Date: 20220424
  Serious: Yes (Hospitalization, Other)
  Sender: FDA-Public Use
  Company Number: DE-CPL-002756

PATIENT
  Age: 57 Year
  Sex: Female

DRUGS (5)
  1. PAROXETINE [Suspect]
     Active Substance: PAROXETINE
     Indication: Depression
     Dosage: 40 MG/D
  2. QUETIAPINE [Suspect]
     Active Substance: QUETIAPINE
     Indication: Depression
     Dosage: 450 MG/D
  3. PERPHENAZINE [Suspect]
     Active Substance: PERPHENAZINE
     Indication: Depression
     Dosage: 12 MG/D
  4. VANCOMYCIN [Concomitant]
     Active Substance: VANCOMYCIN
  5. CEFTAZIDIME [Concomitant]
     Active Substance: CEFTAZIDIME

REACTIONS (1)
  - Neuroleptic malignant syndrome [Unknown]
